FAERS Safety Report 24617915 (Version 2)
Quarter: 2025Q3

REPORT INFORMATION
  Report Type: Spontaneous
  Country: US (occurrence: US)
  Receive Date: 20241114
  Receipt Date: 20250816
  Transmission Date: 20251021
  Serious: No
  Sender: ALEXION PHARMACEUTICALS
  Company Number: US-ASTRAZENECA-202411USA007740US

PATIENT
  Sex: Male

DRUGS (10)
  1. SYMBICORT [Suspect]
     Active Substance: BUDESONIDE\FORMOTEROL FUMARATE DIHYDRATE
  2. BUDESONIDE [Concomitant]
     Active Substance: BUDESONIDE
  3. NASALCROM [Concomitant]
     Active Substance: CROMOLYN SODIUM
  4. HYDROCHLOROTHIAZIDE [Concomitant]
     Active Substance: HYDROCHLOROTHIAZIDE
  5. CLOPIDOGREL [Suspect]
     Active Substance: CLOPIDOGREL BISULFATE
  6. ASPIRIN [Concomitant]
     Active Substance: ASPIRIN
  7. ELIQUIS [Suspect]
     Active Substance: APIXABAN
  8. TRELEGY ELLIPTA [Concomitant]
     Active Substance: FLUTICASONE FUROATE\UMECLIDINIUM BROMIDE\VILANTEROL TRIFENATATE
  9. KETOTIFEN [Concomitant]
     Active Substance: KETOTIFEN
  10. PANTOPRAZOLE [Concomitant]
     Active Substance: PANTOPRAZOLE

REACTIONS (1)
  - Abdominal pain upper [Unknown]
